FAERS Safety Report 7649989-8 (Version None)
Quarter: 2011Q3

REPORT INFORMATION
  Report Type: 
  Country: None (occurrence: None)
  Receive Date: 20110802
  Receipt Date: 20110721
  Transmission Date: 20111222
  Serious: Yes (Life-Threatening, Other)
  Sender: FDA-Public Use
  Company Number: JP-JNJFOC-20091005602

PATIENT
  Age: 57 Year
  Sex: Female

DRUGS (11)
  1. REMICADE [Suspect]
     Route: 042
  2. BUCILLAMINE [Concomitant]
     Route: 048
  3. FAMOTIDINE [Concomitant]
     Indication: PROPHYLAXIS
     Route: 048
     Dates: start: 20091014, end: 20091014
  4. REMICADE [Suspect]
     Indication: RHEUMATOID ARTHRITIS
     Route: 042
     Dates: start: 20091014
  5. REMICADE [Suspect]
     Dosage: 3 DOSES
     Route: 042
  6. METHOTREXATE [Concomitant]
     Indication: RHEUMATOID ARTHRITIS
     Route: 048
  7. LOXOPROFEN SODIUM [Concomitant]
     Route: 048
  8. ACETAMINOPHEN [Concomitant]
     Indication: PROPHYLAXIS
     Route: 048
     Dates: start: 20091014, end: 20091014
  9. REMICADE [Suspect]
     Dosage: 3 DOSES
     Route: 042
  10. ALLEGRA [Concomitant]
     Indication: PROPHYLAXIS
     Route: 048
     Dates: start: 20091014, end: 20091014
  11. PREDNISOLONE [Concomitant]
     Route: 048

REACTIONS (5)
  - CEREBRAL ARTERY EMBOLISM [None]
  - INFUSION RELATED REACTION [None]
  - RESPIRATORY ARREST [None]
  - ANAPHYLACTIC REACTION [None]
  - ATRIAL FIBRILLATION [None]
